FAERS Safety Report 24292181 (Version 1)
Quarter: 2024Q3

REPORT INFORMATION
  Report Type: Spontaneous
  Country: US (occurrence: None)
  Receive Date: 20240906
  Receipt Date: 20240906
  Transmission Date: 20241017
  Serious: No
  Sender: DOMPE FARMACEUTICI
  Company Number: UM-FARMAPROD-202308-202404-1626

PATIENT
  Sex: Female

DRUGS (10)
  1. OXERVATE [Suspect]
     Active Substance: CENEGERMIN-BKBJ
     Indication: Neurotrophic keratopathy
     Route: 047
     Dates: start: 20240320
  2. DYSPORT [Concomitant]
     Active Substance: ABOBOTULINUMTOXINA
     Dosage: VIAL
  3. LOTEMAX [Concomitant]
     Active Substance: LOTEPREDNOL ETABONATE
     Dosage: DROPS GEL
  4. GOCOVRI [Concomitant]
     Active Substance: AMANTADINE
     Dosage: FOR 24 HOURS
  5. METOPROLOL SUCCINATE [Concomitant]
     Active Substance: METOPROLOL SUCCINATE
  6. CLONAZEPAM [Concomitant]
     Active Substance: CLONAZEPAM
  7. BACLOFEN [Concomitant]
     Active Substance: BACLOFEN
  8. SERTRALINE HYDROCHLORIDE [Concomitant]
     Active Substance: SERTRALINE HYDROCHLORIDE
  9. RASAGILINE MESYLATE [Concomitant]
     Active Substance: RASAGILINE MESYLATE
  10. RYTARY [Concomitant]
     Active Substance: CARBIDOPA\LEVODOPA
     Dosage: 23.75-95MG

REACTIONS (1)
  - Inappropriate schedule of product administration [Unknown]
